FAERS Safety Report 24730568 (Version 1)
Quarter: 2024Q4

REPORT INFORMATION
  Report Type: Spontaneous
  Country: US (occurrence: US)
  Receive Date: 20241213
  Receipt Date: 20241213
  Transmission Date: 20250115
  Serious: Yes (Hospitalization, Other)
  Sender: MICRO LABS
  Company Number: US-862174955-ML2024-06473

PATIENT
  Age: 55 Year
  Sex: Female

DRUGS (1)
  1. SEVELAMER CARBONATE [Suspect]
     Active Substance: SEVELAMER CARBONATE
     Indication: Hyperphosphataemia
     Dosage: 3X DAILY
     Route: 048

REACTIONS (2)
  - Haematochezia [Unknown]
  - Large intestinal ulcer [Unknown]
